FAERS Safety Report 16214462 (Version 1)
Quarter: 2019Q2

REPORT INFORMATION
  Report Type: Spontaneous
  Country: PT (occurrence: PT)
  Receive Date: 20190418
  Receipt Date: 20190418
  Transmission Date: 20190711
  Serious: Yes (Other)
  Sender: FDA-Public Use
  Company Number: PT-ALLERGAN-1916815US

PATIENT
  Sex: Female

DRUGS (1)
  1. FOSFOMYCIN TROMETHAMINE - BP [Suspect]
     Active Substance: FOSFOMYCIN TROMETHAMINE
     Indication: URINARY TRACT INFECTION
     Dosage: 1 DF IN TOTAL
     Route: 065
     Dates: start: 201602, end: 201602

REACTIONS (2)
  - Urticaria [Recovered/Resolved]
  - Dyspnoea [Recovered/Resolved]

NARRATIVE: CASE EVENT DATE: 201602
